FAERS Safety Report 7415185-2 (Version None)
Quarter: 2011Q2

REPORT INFORMATION
  Report Type: 
  Country: None (occurrence: None)
  Receive Date: 20110414
  Receipt Date: 20110406
  Transmission Date: 20111010
  Serious: Yes (Other)
  Sender: FDA-Public Use
  Company Number: PHHY2011US28669

PATIENT
  Sex: Male
  Weight: 84 kg

DRUGS (1)
  1. TASIGNA [Suspect]
     Indication: LEUKAEMIA
     Dosage: 400 MG, Q12H
     Route: 048
     Dates: start: 20091201

REACTIONS (1)
  - PSORIASIS [None]
